FAERS Safety Report 21547441 (Version 1)
Quarter: 2022Q4

REPORT INFORMATION
  Report Type: Spontaneous
  Country: US (occurrence: None)
  Receive Date: 20221101
  Receipt Date: 20221101
  Transmission Date: 20230112
  Serious: Yes (Hospitalization)
  Sender: FDA-Public Use
  Company Number: None

PATIENT

DRUGS (1)
  1. WARFARIN [Suspect]
     Active Substance: WARFARIN

REACTIONS (10)
  - Asthenia [None]
  - Melaena [None]
  - Haematocrit decreased [None]
  - Haemoglobin decreased [None]
  - Transfusion [None]
  - International normalised ratio increased [None]
  - Red blood cell transfusion [None]
  - Gastritis [None]
  - Haemodialysis [None]
  - Therapy interrupted [None]

NARRATIVE: CASE EVENT DATE: 20210216
